FAERS Safety Report 10851461 (Version 1)
Quarter: 2015Q1

REPORT INFORMATION
  Report Type: Spontaneous
  Country: US (occurrence: US)
  Receive Date: 20150222
  Receipt Date: 20150222
  Transmission Date: 20150721
  Serious: No
  Sender: FDA-Public Use
  Company Number: US-ALLERGAN-1413218US

PATIENT
  Age: 54 Year
  Sex: Female
  Weight: 110 kg

DRUGS (3)
  1. BOTOX [Suspect]
     Active Substance: ONABOTULINUMTOXINA
     Indication: MIGRAINE
     Dosage: 195 UNITS, SINGLE
  2. LAMICTAL [Concomitant]
     Active Substance: LAMOTRIGINE
  3. PERCOCET                           /00446701/ [Concomitant]
     Active Substance: ACETAMINOPHEN\OXYCODONE HYDROCHLORIDE\OXYCODONE TEREPHTHALATE

REACTIONS (6)
  - Pharyngeal oedema [Recovering/Resolving]
  - Hypersensitivity [Recovering/Resolving]
  - Dysphonia [Recovering/Resolving]
  - Paraesthesia [Recovering/Resolving]
  - Eye pruritus [Recovering/Resolving]
  - Eye swelling [Recovering/Resolving]

NARRATIVE: CASE EVENT DATE: 20140530
